FAERS Safety Report 5195103-0 (Version None)
Quarter: 2006Q4

REPORT INFORMATION
  Report Type: 
  Country: None (occurrence: None)
  Receive Date: 20061229
  Receipt Date: 20061221
  Transmission Date: 20070319
  Serious: Yes (Hospitalization)
  Sender: FDA-Public Use
  Company Number: US-ABBOTT-06P-163-0353990-00

PATIENT
  Sex: Female
  Weight: 81.72 kg

DRUGS (1)
  1. SYNTHROID [Suspect]
     Indication: DRUG USE FOR UNKNOWN INDICATION
     Route: 048
     Dates: start: 19840101

REACTIONS (5)
  - CHONDROPATHY [None]
  - FALL [None]
  - FATIGUE [None]
  - LUNG NEOPLASM [None]
  - PNEUMONIA [None]
